FAERS Safety Report 5645882-0 (Version None)
Quarter: 2008Q1

REPORT INFORMATION
  Report Type: 
  Country: None (occurrence: None)
  Receive Date: 20080229
  Receipt Date: 20080226
  Transmission Date: 20080703
  Serious: Yes (Death)
  Sender: FDA-Public Use
  Company Number: US-GILEAD-2008-0015401

PATIENT
  Sex: Male

DRUGS (11)
  1. LETAIRIS [Suspect]
     Indication: PULMONARY HYPERTENSION
  2. BUMEX [Concomitant]
  3. ACEON [Concomitant]
  4. TOPROL [Concomitant]
  5. COREG [Concomitant]
  6. PLAVIX [Concomitant]
  7. PLETAL [Concomitant]
  8. LIPITOR [Concomitant]
  9. ALBUTEROL [Concomitant]
     Route: 055
  10. MOBIC [Concomitant]
  11. OXYGEN [Concomitant]

REACTIONS (1)
  - DEATH [None]
